FAERS Safety Report 9831651 (Version 4)
Quarter: 2014Q2

REPORT INFORMATION
  Report Type: Spontaneous
  Country: US (occurrence: US)
  Receive Date: 20140121
  Receipt Date: 20140522
  Transmission Date: 20141212
  Serious: No
  Sender: FDA-Public Use
  Company Number: US-PFIZER INC-2014017778

PATIENT
  Sex: Male

DRUGS (3)
  1. PRISTIQ [Suspect]
     Indication: DEPRESSION
     Dosage: 50 MG, DAILY
  2. PRISTIQ [Suspect]
     Dosage: 100 MG, DAILY
  3. PRISTIQ [Suspect]
     Dosage: 50 MG, DAILY

REACTIONS (3)
  - Anger [Unknown]
  - Blood glucose increased [Unknown]
  - Drug ineffective [Unknown]
